FAERS Safety Report 7290643-2 (Version None)
Quarter: 2011Q1

REPORT INFORMATION
  Report Type: 
  Country: None (occurrence: None)
  Receive Date: 20110214
  Receipt Date: 20110209
  Transmission Date: 20110831
  Serious: Yes (Other)
  Sender: FDA-Public Use
  Company Number: US-PFIZER INC-2011029911

PATIENT
  Sex: Female

DRUGS (1)
  1. GEODON [Suspect]
     Dosage: UNK

REACTIONS (9)
  - CATATONIA [None]
  - METABOLIC DISORDER [None]
  - BLEPHAROSPASM [None]
  - EYE MOVEMENT DISORDER [None]
  - WEIGHT INCREASED [None]
  - DYSTONIA [None]
  - TARDIVE DYSKINESIA [None]
  - RESTLESSNESS [None]
  - LOSS OF CONSCIOUSNESS [None]
